FAERS Safety Report 23662565 (Version 2)
Quarter: 2024Q1

REPORT INFORMATION
  Report Type: Spontaneous
  Country: CN (occurrence: CN)
  Receive Date: 20240322
  Receipt Date: 20240327
  Transmission Date: 20240410
  Serious: Yes (Hospitalization, Other)
  Sender: FDA-Public Use
  Company Number: CN-MYLANLABS-2024M1025947

PATIENT
  Age: 60 Year
  Sex: Male

DRUGS (10)
  1. CELEBREX [Suspect]
     Active Substance: CELECOXIB
     Indication: Product used for unknown indication
     Dosage: UNK
     Route: 065
  2. CELEBREX [Suspect]
     Active Substance: CELECOXIB
     Dosage: 200 MILLIGRAM, BID
     Route: 048
     Dates: start: 20240213
  3. CELEBREX [Suspect]
     Active Substance: CELECOXIB
     Dosage: 200 MILLIGRAM, QD
     Route: 048
     Dates: start: 20240217
  4. MANNITOL [Concomitant]
     Active Substance: MANNITOL
     Dosage: 150 MILLILITER, QD
     Route: 042
     Dates: start: 20240213
  5. Sodium hyaluronate huons [Concomitant]
     Dosage: 20 MILLIGRAM
     Route: 065
     Dates: start: 20240214
  6. Sodium hyaluronate huons [Concomitant]
     Dosage: 20 MILLIGRAM
     Route: 065
     Dates: start: 20240217
  7. LIDOCAINE HYDROCHLORIDE AND DEXTROSE [Concomitant]
     Active Substance: LIDOCAINE HYDROCHLORIDE
     Dosage: 0.2 GRAM
     Route: 065
     Dates: start: 20240214
  8. LIDOCAINE HYDROCHLORIDE AND DEXTROSE [Concomitant]
     Active Substance: LIDOCAINE HYDROCHLORIDE
     Dosage: 0.2 GRAM
     Route: 065
     Dates: start: 20240217
  9. BETAMETHASONE [Concomitant]
     Active Substance: BETAMETHASONE\BETAMETHASONE DIPROPIONATE
     Dosage: 20 MILLILITER
     Route: 065
     Dates: start: 20240214
  10. BETAMETHASONE [Concomitant]
     Active Substance: BETAMETHASONE\BETAMETHASONE DIPROPIONATE
     Dosage: 20 MILLILITER
     Route: 065
     Dates: start: 20240217

REACTIONS (15)
  - Drug eruption [Recovering/Resolving]
  - Mitral valve incompetence [Unknown]
  - Tricuspid valve incompetence [Unknown]
  - Atrial hypertrophy [Unknown]
  - Aortic aneurysm [Unknown]
  - Left ventricular dysfunction [Unknown]
  - Hypertension [Unknown]
  - Nasopharyngitis [Unknown]
  - Vascular headache [Unknown]
  - Chronic sinusitis [Unknown]
  - Benign prostatic hyperplasia [Unknown]
  - Hypoproteinaemia [Unknown]
  - Periarthritis [Unknown]
  - Central nervous system lesion [Unknown]
  - Paranasal sinus inflammation [Unknown]
